FAERS Safety Report 15891078 (Version 2)
Quarter: 2019Q3

REPORT INFORMATION
  Report Type: Report from Study
  Country: IT (occurrence: IT)
  Receive Date: 20190130
  Receipt Date: 20190709
  Transmission Date: 20191004
  Serious: Yes (Death, Life-Threatening, Hospitalization, Other)
  Sender: FDA-Public Use
  Company Number: IT-MYLANLABS-2019M1008673

PATIENT
  Age: 43 Year
  Sex: Female
  Weight: 55 kg

DRUGS (7)
  1. VALGANCICLOVIR. [Concomitant]
     Active Substance: VALGANCICLOVIR
     Dosage: UNK
     Dates: start: 20181227, end: 20181229
  2. LEVOFLOXACINA [Concomitant]
     Active Substance: LEVOFLOXACIN
     Dosage: UNK
     Dates: start: 20181208
  3. CYCLOSPORINE. [Concomitant]
     Active Substance: CYCLOSPORINE
     Dosage: UNK
     Dates: start: 20180926
  4. LAMIVUDINE. [Concomitant]
     Active Substance: LAMIVUDINE
     Dosage: UNK
     Dates: start: 2018
  5. NIFEDIPINA [Concomitant]
     Active Substance: NIFEDIPINE
     Dosage: UNK
     Dates: start: 20181109, end: 20181228
  6. POSACONAZOLE [Concomitant]
     Active Substance: POSACONAZOLE
     Dosage: UNK
     Dates: start: 201801, end: 20181228
  7. PREDNISONE. [Suspect]
     Active Substance: PREDNISONE
     Indication: ACUTE GRAFT VERSUS HOST DISEASE
     Dosage: 50 MILLIGRAM, QD
     Route: 048
     Dates: start: 20181107

REACTIONS (4)
  - Pyelonephritis [Not Recovered/Not Resolved]
  - Bacterial infection [Not Recovered/Not Resolved]
  - Multiple organ dysfunction syndrome [Unknown]
  - Cerebral haemorrhage [Fatal]

NARRATIVE: CASE EVENT DATE: 20181227
